FAERS Safety Report 7293396-7 (Version None)
Quarter: 2011Q1

REPORT INFORMATION
  Report Type: 
  Country: None (occurrence: None)
  Receive Date: 20110204
  Receipt Date: 20110126
  Transmission Date: 20110831
  Serious: Yes (Other)
  Sender: FDA-Public Use
  Company Number: ALK_01546_2011

PATIENT
  Sex: Male
  Weight: 63.5036 kg

DRUGS (3)
  1. VIVITROL [Suspect]
     Indication: ALCOHOLISM
     Dosage: INTRAMUSCULAR
     Route: 030
     Dates: start: 20101208
  2. LEXAPRO [Concomitant]
  3. ZYPREXA [Concomitant]

REACTIONS (1)
  - RETINAL DETACHMENT [None]
